FAERS Safety Report 7390710-9 (Version None)
Quarter: 2011Q2

REPORT INFORMATION
  Report Type: 
  Country: None (occurrence: None)
  Receive Date: 20110404
  Receipt Date: 20110323
  Transmission Date: 20111010
  Serious: No
  Sender: FDA-Public Use
  Company Number: US-BIOGENIDEC-2011BI011151

PATIENT
  Age: 50 Year
  Sex: Female

DRUGS (1)
  1. TYSABRI [Suspect]
     Indication: MULTIPLE SCLEROSIS
     Route: 042
     Dates: start: 20100604

REACTIONS (6)
  - FAECAL INCONTINENCE [None]
  - CHEILITIS [None]
  - ONYCHOMYCOSIS [None]
  - HYPOAESTHESIA [None]
  - ANAL FUNGAL INFECTION [None]
  - CONJUNCTIVITIS [None]
